FAERS Safety Report 20044660 (Version 1)
Quarter: 2021Q4

REPORT INFORMATION
  Report Type: Spontaneous
  Country: CA (occurrence: CA)
  Receive Date: 20211108
  Receipt Date: 20211108
  Transmission Date: 20220303
  Serious: Yes (Other)
  Sender: FDA-Public Use
  Company Number: CA-TEVA-2021-CA-1973437

PATIENT
  Age: 60 Year
  Sex: Female
  Weight: 66 kg

DRUGS (2)
  1. METHOTREXATE [Suspect]
     Active Substance: METHOTREXATE
     Indication: Seronegative arthritis
     Route: 065
  2. PREDNISONE [Suspect]
     Active Substance: PREDNISONE
     Indication: Seronegative arthritis
     Route: 065

REACTIONS (7)
  - Haematuria [Unknown]
  - Mononeuropathy multiplex [Unknown]
  - Nasal disorder [Unknown]
  - Nephropathy [Unknown]
  - Proteinuria [Unknown]
  - Sinus disorder [Unknown]
  - Skin ulcer [Unknown]
